FAERS Safety Report 10383161 (Version 2)
Quarter: 2014Q3

REPORT INFORMATION
  Report Type: Report from Study
  Country: JP (occurrence: JP)
  Receive Date: 20140813
  Receipt Date: 20140813
  Transmission Date: 20150326
  Serious: Yes (Death, Other)
  Sender: FDA-Public Use
  Company Number: PHHY2012JP012683

PATIENT
  Age: 72 Year
  Sex: Male
  Weight: 50 kg

DRUGS (8)
  1. LOPEMIN [Concomitant]
     Active Substance: LOPERAMIDE HYDROCHLORIDE
     Dosage: 1 MG, UNK
     Route: 048
     Dates: start: 20090305, end: 20090713
  2. ICL670A [Suspect]
     Active Substance: DEFERASIROX
     Indication: IRON OVERLOAD
     Dosage: 1000 MG, DAILY
     Route: 048
     Dates: start: 20090107, end: 20090707
  3. PRIMOBOLAN-DEPOT [Concomitant]
     Active Substance: METHENOLONE ENANTHATE
     Indication: MYELODYSPLASTIC SYNDROME
     Dosage: 20 MG, UNK
     Route: 048
     Dates: start: 19990803
  4. ICL670A [Suspect]
     Active Substance: DEFERASIROX
     Dosage: 500 MG, DAILY
     Route: 048
     Dates: start: 20090708, end: 20090713
  5. RED CELLS MAP [Concomitant]
     Active Substance: UNSPECIFIED INGREDIENT
     Dates: start: 20070911, end: 20100112
  6. BENDAMUSTINE [Concomitant]
     Active Substance: BENDAMUSTINE
  7. ZYLORIC [Concomitant]
     Active Substance: ALLOPURINOL
     Dosage: 100 MG, UNK
     Route: 048
     Dates: start: 19990126, end: 20090713
  8. ICL670A [Suspect]
     Active Substance: DEFERASIROX
     Dosage: 125 MG, DAILY
     Route: 048

REACTIONS (5)
  - Diarrhoea [Recovered/Resolved]
  - Liver disorder [Unknown]
  - Malignant neoplasm progression [Fatal]
  - Renal impairment [Recovering/Resolving]
  - Renal disorder [Recovered/Resolved]

NARRATIVE: CASE EVENT DATE: 20090203
